FAERS Safety Report 7393011-8 (Version None)
Quarter: 2011Q2

REPORT INFORMATION
  Report Type: 
  Country: None (occurrence: None)
  Receive Date: 20110404
  Receipt Date: 20110328
  Transmission Date: 20111010
  Serious: Yes (Other)
  Sender: FDA-Public Use
  Company Number: US-BAXTER-2010BH014716

PATIENT
  Age: 61 Year
  Sex: Female
  Weight: 78 kg

DRUGS (20)
  1. DIPHENHYDRAMINE HYDROCHLORIDE [Concomitant]
     Indication: PRURITUS
     Route: 048
  2. FISH OIL [Concomitant]
     Indication: VITAMIN SUPPLEMENTATION
     Route: 048
     Dates: end: 20100426
  3. PENICILLIN VK [Concomitant]
     Indication: PROPHYLAXIS
     Route: 048
     Dates: start: 20090925, end: 20100515
  4. EZETIMIBE [Concomitant]
  5. EPIPEN [Concomitant]
  6. SUDAFED 12 HOUR [Concomitant]
     Indication: NASAL DISCOMFORT
     Route: 048
  7. SINGULAIR [Concomitant]
     Indication: HYPERSENSITIVITY
     Route: 048
  8. SIMVASTATIN [Concomitant]
  9. GAMMAGARD LIQUID [Suspect]
     Route: 042
     Dates: start: 20100426, end: 20100426
  10. GAMMAGARD LIQUID [Suspect]
     Route: 042
     Dates: start: 20100426, end: 20100426
  11. ACIPHEX [Concomitant]
     Indication: GASTROOESOPHAGEAL REFLUX DISEASE
     Route: 048
  12. LAMISIL                            /00992601/ [Concomitant]
     Indication: FUNGAL INFECTION
     Route: 048
     Dates: start: 20100301, end: 20100603
  13. FLOVENT [Concomitant]
  14. GAMMAGARD LIQUID [Suspect]
     Indication: IMMUNODEFICIENCY COMMON VARIABLE
     Route: 042
     Dates: start: 20050916, end: 20100426
  15. GAMMAGARD LIQUID [Suspect]
     Route: 042
     Dates: start: 20100426, end: 20100426
  16. GAMMAGARD LIQUID [Suspect]
     Route: 042
     Dates: start: 20100426, end: 20100426
  17. CLARITIN [Concomitant]
     Indication: PRURITUS
     Route: 048
  18. GAMMAGARD LIQUID [Suspect]
     Indication: PRIMARY IMMUNODEFICIENCY SYNDROME
     Route: 042
     Dates: start: 20050916, end: 20100426
  19. GUAIFENESIN [Concomitant]
     Indication: NASAL DISCOMFORT
     Route: 048
  20. ALBUTEROL [Concomitant]
     Indication: BRONCHIAL HYPERREACTIVITY
     Route: 055

REACTIONS (2)
  - URTICARIA [None]
  - PRURITUS [None]
